FAERS Safety Report 21890790 (Version 1)
Quarter: 2023Q1

REPORT INFORMATION
  Report Type: Spontaneous
  Country: US (occurrence: US)
  Receive Date: 20230120
  Receipt Date: 20230120
  Transmission Date: 20230418
  Serious: No
  Sender: FDA-Public Use
  Company Number: US-ANTARES PHARMA, INC.-2022-SPO-SU-0647

PATIENT

DRUGS (4)
  1. SUMATRIPTAN [Suspect]
     Active Substance: SUMATRIPTAN
     Indication: Migraine
     Dosage: 6 MG/0.5ML, UNKNOWN
     Route: 058
  2. SUMATRIPTAN [Suspect]
     Active Substance: SUMATRIPTAN
     Dosage: 6 MG/0.5ML, UNKNOWN
     Route: 058
  3. SUMATRIPTAN [Suspect]
     Active Substance: SUMATRIPTAN
     Dosage: 6 MG/0.5ML, UNKNOWN
     Route: 058
  4. SUMATRIPTAN [Suspect]
     Active Substance: SUMATRIPTAN
     Dosage: 6 MG/0.5ML, UNKNOWN
     Route: 058

REACTIONS (4)
  - Injection site haemorrhage [Unknown]
  - Pain [Unknown]
  - Product dose omission issue [Unknown]
  - Injection site injury [Unknown]
